FAERS Safety Report 7573560 (Version 4)
Quarter: 2013Q4

REPORT INFORMATION
  Report Type: Spontaneous
  Country: US (occurrence: US)
  Receive Date: 20100906
  Receipt Date: 20131022
  Transmission Date: 20140711
  Serious: Yes (Hospitalization)
  Sender: FDA-Public Use
  Company Number: US-BIOGENIDEC-2010BI030335

PATIENT
  Age: 63 Year
  Sex: Female

DRUGS (2)
  1. AVONEX [Suspect]
     Indication: MULTIPLE SCLEROSIS
     Route: 030
     Dates: start: 19990901, end: 20050509
  2. AVONEX [Suspect]
     Indication: MULTIPLE SCLEROSIS
     Route: 030
     Dates: start: 20080403

REACTIONS (18)
  - Overdose [Recovered/Resolved]
  - Adverse drug reaction [Unknown]
  - Coordination abnormal [Unknown]
  - Dysarthria [Unknown]
  - Furuncle [Unknown]
  - Local swelling [Unknown]
  - Staphylococcal infection [Unknown]
  - Hypoaesthesia [Recovered/Resolved]
  - Musculoskeletal disorder [Not Recovered/Not Resolved]
  - Loss of control of legs [Not Recovered/Not Resolved]
  - Fall [Recovered/Resolved]
  - Amnesia [Not Recovered/Not Resolved]
  - Memory impairment [Not Recovered/Not Resolved]
  - Gait disturbance [Not Recovered/Not Resolved]
  - Headache [Unknown]
  - Drug ineffective [Unknown]
  - Arthralgia [Unknown]
  - Injection site infection [Recovered/Resolved with Sequelae]
